FAERS Safety Report 23944974 (Version 1)
Quarter: 2024Q2

REPORT INFORMATION
  Report Type: Spontaneous
  Country: JP (occurrence: JP)
  Receive Date: 20240606
  Receipt Date: 20240606
  Transmission Date: 20240716
  Serious: Yes (Other)
  Sender: FDA-Public Use
  Company Number: JP-TAKEDA-2024TJP006622

PATIENT

DRUGS (1)
  1. ZEJULA [Suspect]
     Active Substance: NIRAPARIB
     Indication: Product used for unknown indication
     Dosage: 200 MG, QD(200 MILLIGRAM, QD)
     Route: 048
     Dates: start: 20240227, end: 20240424

REACTIONS (2)
  - Condition aggravated [Not Recovered/Not Resolved]
  - Peritoneal lesion [Unknown]

NARRATIVE: CASE EVENT DATE: 20240424
